FAERS Safety Report 5693450-7 (Version None)
Quarter: 2008Q2

REPORT INFORMATION
  Report Type: 
  Country: None (occurrence: None)
  Receive Date: 20080401
  Receipt Date: 20080401
  Transmission Date: 20081010
  Serious: Yes (Hospitalization)
  Sender: FDA-Public Use
  Company Number: None

PATIENT
  Age: 56 Year
  Sex: Male
  Weight: 73.4827 kg

DRUGS (2)
  1. TARCEVA [Suspect]
     Indication: NON-SMALL CELL LUNG CANCER
     Dosage: 150 MG ONCE DAILY ORAL  100 MG ONCE DAILY ORAL
     Route: 048
     Dates: start: 20080301, end: 20080310
  2. TARCEVA [Suspect]
     Indication: NON-SMALL CELL LUNG CANCER
     Dosage: 150 MG ONCE DAILY ORAL  100 MG ONCE DAILY ORAL
     Route: 048
     Dates: start: 20080311, end: 20080328

REACTIONS (5)
  - DIARRHOEA [None]
  - NAUSEA [None]
  - PNEUMONIA BACTERIAL [None]
  - RASH MACULO-PAPULAR [None]
  - VOMITING [None]
